FAERS Safety Report 12223928 (Version 1)
Quarter: 2016Q1

REPORT INFORMATION
  Report Type: Spontaneous
  Country: US (occurrence: US)
  Receive Date: 20160330
  Receipt Date: 20160330
  Transmission Date: 20160526
  Serious: Yes (Other)
  Sender: FDA-Public Use
  Company Number: US-LUNDBECK-DKLU2011627

PATIENT
  Age: 73 Year
  Sex: Female

DRUGS (2)
  1. NORTHERA [Suspect]
     Active Substance: DROXIDOPA
     Indication: PRODUCT USED FOR UNKNOWN INDICATION
     Route: 065
     Dates: start: 20160227
  2. NORTHERA [Suspect]
     Active Substance: DROXIDOPA
     Route: 065
     Dates: start: 20160321

REACTIONS (5)
  - Memory impairment [Not Recovered/Not Resolved]
  - Condition aggravated [Not Recovered/Not Resolved]
  - Balance disorder [Not Recovered/Not Resolved]
  - Fatigue [Not Recovered/Not Resolved]
  - Mental impairment [Not Recovered/Not Resolved]

NARRATIVE: CASE EVENT DATE: 201603
